FAERS Safety Report 9613078 (Version 2)
Quarter: 2013Q4

REPORT INFORMATION
  Report Type: Spontaneous
  Country: GB (occurrence: GB)
  Receive Date: 20131010
  Receipt Date: 20131010
  Transmission Date: 20140711
  Serious: Yes (Disabling)
  Sender: FDA-Public Use
  Company Number: GB-ABBVIE-12P-167-0996251-00

PATIENT
  Age: 77 Year
  Sex: Male

DRUGS (9)
  1. EPILIM CHRONO [Suspect]
     Indication: EPILEPSY
     Route: 065
     Dates: start: 200205, end: 20120630
  2. EPILIM CHRONO [Suspect]
     Dates: start: 20120731
  3. EPILIM CHRONO [Suspect]
     Route: 048
     Dates: start: 20130301
  4. EPILIM CHRONO [Suspect]
     Route: 048
  5. EPILIM CHRONO [Suspect]
     Route: 048
  6. WARFARIN [Concomitant]
     Indication: PRODUCT USED FOR UNKNOWN INDICATION
     Dates: start: 201010
  7. SIMVASTATIN [Concomitant]
     Indication: PRODUCT USED FOR UNKNOWN INDICATION
     Dates: start: 201010
  8. BISOPROLOL [Concomitant]
     Indication: PRODUCT USED FOR UNKNOWN INDICATION
     Dates: start: 2008
  9. MIRTAZAPINE [Concomitant]
     Indication: PRODUCT USED FOR UNKNOWN INDICATION
     Dates: start: 201205

REACTIONS (6)
  - Mental impairment [Unknown]
  - Parkinsonism [Unknown]
  - Depressive symptom [Unknown]
  - Hypertonia [Unknown]
  - Extrapyramidal disorder [Unknown]
  - Mobility decreased [Unknown]
